FAERS Safety Report 6697685-6 (Version None)
Quarter: 2010Q2

REPORT INFORMATION
  Report Type: 
  Country: None (occurrence: None)
  Receive Date: 20100426
  Receipt Date: 20100421
  Transmission Date: 20101027
  Serious: Yes (Other)
  Sender: FDA-Public Use
  Company Number: US-MERCK-1004USA03579

PATIENT
  Sex: Female

DRUGS (1)
  1. IVEMEND [Suspect]
     Indication: PROPHYLAXIS OF NAUSEA AND VOMITING
     Route: 041
     Dates: start: 20100420, end: 20100420

REACTIONS (2)
  - BRONCHOSPASM [None]
  - DYSPNOEA [None]
